FAERS Safety Report 14947413 (Version 3)
Quarter: 2018Q4

REPORT INFORMATION
  Report Type: Report from Study
  Country: CN (occurrence: CN)
  Receive Date: 20180529
  Receipt Date: 20181203
  Transmission Date: 20190204
  Serious: Yes (Death)
  Sender: FDA-Public Use
  Company Number: CN-PFIZER INC-2018214859

PATIENT
  Age: 7 Year
  Sex: Female

DRUGS (7)
  1. CYTARABINE. [Suspect]
     Active Substance: CYTARABINE
     Indication: ACUTE LYMPHOCYTIC LEUKAEMIA
     Dosage: 27 MG, UNK (20 INTRATHECAL INJECTIONS)
     Route: 037
  2. DEXAMETHASONE. [Concomitant]
     Active Substance: DEXAMETHASONE
     Dosage: 4.5 MG, UNK (20 INTRATHECAL INJECTIONS)
     Route: 037
  3. VINDESINE [Concomitant]
     Active Substance: VINDESINE
     Indication: ACUTE LYMPHOCYTIC LEUKAEMIA
     Dosage: UNK
     Route: 042
  4. DEXAMETHASONE. [Concomitant]
     Active Substance: DEXAMETHASONE
     Indication: ACUTE LYMPHOCYTIC LEUKAEMIA
     Dosage: 5 MG, UNK (20 INTRATHECAL INJECTIONS)
     Route: 037
  5. METHOTREXATE. [Suspect]
     Active Substance: METHOTREXATE
     Indication: ACUTE LYMPHOCYTIC LEUKAEMIA
     Dosage: 12.5 MG, UNK (20 INTRATHECAL INJECTIONS)
     Route: 037
  6. METHOTREXATE. [Suspect]
     Active Substance: METHOTREXATE
     Dosage: UNK
     Route: 042
  7. STERILE WATER [Concomitant]
     Active Substance: WATER
     Indication: ACUTE LYMPHOCYTIC LEUKAEMIA
     Dosage: 2 ML, UNK (20 INTRATHECAL INJECTIONS)
     Route: 037

REACTIONS (2)
  - Respiratory muscle weakness [Fatal]
  - Paraplegia [Fatal]
